FAERS Safety Report 6567188-8 (Version None)
Quarter: 2010Q1

REPORT INFORMATION
  Report Type: 
  Country: None (occurrence: None)
  Receive Date: 20100202
  Receipt Date: 20100122
  Transmission Date: 20100710
  Serious: Yes (Other)
  Sender: FDA-Public Use
  Company Number: FR-JNJFOC-20100109938

PATIENT
  Age: 6 Year
  Sex: Female
  Weight: 15 kg

DRUGS (8)
  1. REMICADE [Suspect]
     Indication: CROHN'S DISEASE
     Dosage: 4TH INFUSION
     Route: 042
  2. REMICADE [Suspect]
     Dosage: 4TH INFUSION
     Route: 042
  3. REMICADE [Suspect]
     Route: 042
  4. REMICADE [Suspect]
     Dosage: 6.7 MG/KG; 3RD INFUSION
     Route: 042
  5. CORTANCYL [Concomitant]
     Indication: CROHN'S DISEASE
     Route: 048
  6. SMECTA [Concomitant]
     Indication: CROHN'S DISEASE
  7. OROCAL D3 [Concomitant]
     Indication: CROHN'S DISEASE
  8. HYDROCORTISONE [Concomitant]
     Indication: PREMEDICATION

REACTIONS (6)
  - ANAPHYLACTIC REACTION [None]
  - DRUG INEFFECTIVE [None]
  - DYSPNOEA [None]
  - INFUSION RELATED REACTION [None]
  - OXYGEN SATURATION DECREASED [None]
  - TACHYCARDIA [None]
